FAERS Safety Report 16175872 (Version 2)
Quarter: 2019Q2

REPORT INFORMATION
  Report Type: Spontaneous
  Country: JP (occurrence: JP)
  Receive Date: 20190409
  Receipt Date: 20190412
  Transmission Date: 20190711
  Serious: Yes (Life-Threatening, Hospitalization, Other)
  Sender: FDA-Public Use
  Company Number: JP-JNJFOC-20181109752

PATIENT
  Age: 33 Year
  Sex: Female

DRUGS (20)
  1. UTROGESTAN [Concomitant]
     Active Substance: PROGESTERONE
     Indication: IN VITRO FERTILISATION
     Route: 067
     Dates: end: 20171230
  2. UTEMERIN [Suspect]
     Active Substance: RITODRINE
     Indication: PREMATURE DELIVERY
     Route: 048
     Dates: start: 20180301, end: 20180711
  3. ALFAROL [Concomitant]
     Active Substance: ALFACALCIDOL
     Indication: OSTEOPOROSIS
     Route: 048
     Dates: end: 20171207
  4. LURICUL VG [Concomitant]
     Indication: VULVOVAGINAL PRURITUS
     Route: 061
     Dates: start: 20180328
  5. NIZORAL [Concomitant]
     Active Substance: KETOCONAZOLE
     Indication: VULVOVAGINAL CANDIDIASIS
     Route: 065
     Dates: start: 20180704
  6. ALDOMET [Concomitant]
     Active Substance: METHYLDOPA
     Indication: GESTATIONAL HYPERTENSION
     Route: 048
     Dates: start: 20180806
  7. ESTRANA [Concomitant]
     Active Substance: ESTRADIOL
     Indication: IN VITRO FERTILISATION
     Route: 062
     Dates: end: 20171217
  8. DACTIL [Concomitant]
     Indication: ABORTION THREATENED
     Route: 048
     Dates: start: 20171211, end: 20171224
  9. MAGMITT [Concomitant]
     Active Substance: MAGNESIUM OXIDE
     Indication: CONSTIPATION
     Route: 048
     Dates: start: 20180201
  10. PREDONINE [Concomitant]
     Active Substance: PREDNISOLONE
     Indication: STEROID THERAPY
     Route: 042
     Dates: start: 20180809, end: 20180809
  11. PREDNISOLONE. [Suspect]
     Active Substance: PREDNISOLONE
     Indication: TAKAYASU^S ARTERITIS
     Route: 048
  12. BAYASPIRIN [Concomitant]
     Active Substance: ASPIRIN
     Indication: TAKAYASU^S ARTERITIS
     Route: 048
     Dates: end: 20180705
  13. HEMOPORISON [Concomitant]
     Indication: HAEMORRHOIDS
     Route: 061
     Dates: start: 20180328
  14. DUVADILAN [Concomitant]
     Active Substance: ISOXSUPRINE HYDROCHLORIDE
     Indication: IN VITRO FERTILISATION
     Route: 048
     Dates: end: 20171128
  15. FERROUS SULFATE. [Concomitant]
     Active Substance: FERROUS SULFATE
     Indication: ANAEMIA
     Route: 048
  16. REMICADE [Suspect]
     Active Substance: INFLIXIMAB
     Indication: TAKAYASU^S ARTERITIS
     Route: 042
     Dates: start: 20171017
  17. OKINAZOLE [Suspect]
     Active Substance: OXICONAZOLE NITRATE
     Indication: VULVOVAGINAL CANDIDIASIS
     Route: 067
     Dates: start: 20180704, end: 20180704
  18. UTEMERIN [Suspect]
     Active Substance: RITODRINE
     Indication: ABORTION THREATENED
     Route: 048
     Dates: start: 20180301, end: 20180711
  19. PROSTIN E2 [Concomitant]
     Active Substance: DINOPROSTONE
     Indication: LABOUR INDUCTION
     Route: 048
     Dates: start: 20180803, end: 20180808
  20. TAKECAB [Concomitant]
     Active Substance: VONOPRAZAN FUMURATE
     Indication: GASTRIC ULCER
     Route: 048
     Dates: end: 20171207

REACTIONS (17)
  - Hypertensive nephropathy [Recovered/Resolved]
  - Foetal death [Recovered/Resolved]
  - Product use in unapproved indication [Unknown]
  - Abortion threatened [Recovered/Resolved]
  - Postpartum uterine subinvolution [Recovered/Resolved]
  - Off label use [Unknown]
  - Gestational hypertension [Unknown]
  - Premature labour [Recovered/Resolved]
  - Maternal exposure during pregnancy [Recovered/Resolved]
  - Infertility [Unknown]
  - Palpitations [Recovered/Resolved]
  - Umbilical cord abnormality [Recovered/Resolved]
  - Vulvovaginal candidiasis [Recovered/Resolved]
  - Tremor [Recovered/Resolved]
  - Mastitis [Recovered/Resolved]
  - Twin pregnancy [Unknown]
  - Vomiting [Recovered/Resolved]

NARRATIVE: CASE EVENT DATE: 20171017
